FAERS Safety Report 7997475-8 (Version None)
Quarter: 2011Q4

REPORT INFORMATION
  Report Type: 
  Country: None (occurrence: None)
  Receive Date: 20111221
  Receipt Date: 20111221
  Transmission Date: 20120403
  Serious: Yes (Life-Threatening, Hospitalization)
  Sender: FDA-Public Use
  Company Number: None

PATIENT
  Sex: Male
  Weight: 60.781 kg

DRUGS (3)
  1. PANITUMUMAB 1.5MG/KG [Concomitant]
  2. CISPLATIN [Suspect]
     Dosage: 60MG/M2
     Route: 042
     Dates: start: 20111212, end: 20111212
  3. FLUOROURACIL [Concomitant]
     Dosage: 750MG/M2/DAY
     Route: 042
     Dates: start: 20111212, end: 20111212

REACTIONS (5)
  - HEMIPARESIS [None]
  - CAROTID ARTERY STENOSIS [None]
  - ARTERIOSCLEROSIS [None]
  - ISCHAEMIC STROKE [None]
  - APHASIA [None]
